FAERS Safety Report 19521526 (Version 1)
Quarter: 2021Q3

REPORT INFORMATION
  Report Type: Spontaneous
  Country: US (occurrence: US)
  Receive Date: 20210712
  Receipt Date: 20210712
  Transmission Date: 20211014
  Serious: No
  Sender: FDA-Public Use
  Company Number: US-SA-2021SA227610

PATIENT
  Age: 38 Year
  Sex: Female

DRUGS (1)
  1. DUPIXENT [Suspect]
     Active Substance: DUPILUMAB
     Indication: URTICARIA
     Dosage: 300 MG, QOW

REACTIONS (5)
  - Drug effective for unapproved indication [Unknown]
  - Device operational issue [Unknown]
  - Injection site injury [Unknown]
  - Off label use [Unknown]
  - Injection site bruising [Unknown]
